FAERS Safety Report 5762268-9 (Version None)
Quarter: 2008Q2

REPORT INFORMATION
  Report Type: 
  Country: None (occurrence: None)
  Receive Date: 20080609
  Receipt Date: 20080307
  Transmission Date: 20081010
  Serious: Yes (Death, Other)
  Sender: FDA-Public Use
  Company Number: DE-BAYER-200819506GPV

PATIENT

DRUGS (11)
  1. ALEMTUZUMAB [Suspect]
     Indication: T-CELL LYMPHOMA RECURRENT
     Route: 065
  2. MELPHALAN [Suspect]
     Indication: T-CELL LYMPHOMA RECURRENT
     Route: 065
  3. CARMUSTINE [Suspect]
     Indication: T-CELL LYMPHOMA RECURRENT
  4. CYTARABINE [Suspect]
     Indication: T-CELL LYMPHOMA RECURRENT
     Route: 065
  5. ETOPOPHOS PRESERVATIVE FREE [Suspect]
     Indication: T-CELL LYMPHOMA RECURRENT
     Route: 065
  6. CLADRIBINE [Suspect]
     Indication: T-CELL LYMPHOMA RECURRENT
     Route: 065
  7. CYTARABINE [Suspect]
     Route: 065
  8. CYCLOSPORINE [Concomitant]
     Indication: PROPHYLAXIS AGAINST GRAFT VERSUS HOST DISEASE
     Route: 065
  9. METHOTREXATE [Concomitant]
     Indication: PROPHYLAXIS AGAINST GRAFT VERSUS HOST DISEASE
     Route: 065
  10. MYCOPHENOLATE MOFETIL [Concomitant]
     Indication: PROPHYLAXIS AGAINST GRAFT VERSUS HOST DISEASE
     Route: 065
  11. NEUPOGEN [Concomitant]

REACTIONS (11)
  - BRONCHOPULMONARY ASPERGILLOSIS [None]
  - CHRONIC GRAFT VERSUS HOST DISEASE [None]
  - CYTOMEGALOVIRUS INFECTION [None]
  - GASTROENTERITIS VIRAL [None]
  - GRAFT VERSUS HOST DISEASE [None]
  - HEPATOTOXICITY [None]
  - INTESTINAL OBSTRUCTION [None]
  - MUCOSAL INFLAMMATION [None]
  - NEUTROPENIC SEPSIS [None]
  - PNEUMONIA ASPIRATION [None]
  - STREPTOCOCCAL SEPSIS [None]
